FAERS Safety Report 16258123 (Version 2)
Quarter: 2019Q2

REPORT INFORMATION
  Report Type: Spontaneous
  Country: US (occurrence: US)
  Receive Date: 20190430
  Receipt Date: 20190506
  Transmission Date: 20190711
  Serious: Yes (Life-Threatening, Hospitalization, Other)
  Sender: FDA-Public Use
  Company Number: US-PFIZER INC-2019181086

PATIENT
  Age: 28 Year
  Sex: Male

DRUGS (3)
  1. CLENBUTEROL [Suspect]
     Active Substance: CLENBUTEROL
     Dosage: UNK
  2. TRENBOLONE [Suspect]
     Active Substance: TRENBOLONE
     Dosage: UNK
  3. TESTOSTERONE CIPIONATE [Suspect]
     Active Substance: TESTOSTERONE
     Dosage: UNK

REACTIONS (2)
  - Cardiogenic shock [Recovered/Resolved]
  - Cardiomyopathy [Recovered/Resolved]
